FAERS Safety Report 8299368 (Version 2)
Quarter: 2014Q2

REPORT INFORMATION
  Report Type: Spontaneous
  Country: US (occurrence: US)
  Receive Date: 20111219
  Receipt Date: 20140506
  Transmission Date: 20141212
  Serious: Yes (Other)
  Sender: FDA-Public Use
  Company Number: US-ROCHE-793890

PATIENT
  Age: 22 Year
  Sex: Male
  Weight: 65.83 kg

DRUGS (2)
  1. ACCUTANE [Suspect]
     Indication: ACNE
     Route: 065
     Dates: start: 2000, end: 2002
  2. ACCUTANE [Suspect]
     Dosage: START DATE: 2005
     Route: 065

REACTIONS (9)
  - Inflammatory bowel disease [Unknown]
  - Crohn^s disease [Unknown]
  - Colitis ulcerative [Unknown]
  - Coagulopathy [Unknown]
  - Chest pain [Unknown]
  - Emotional distress [Unknown]
  - Anal abscess [Unknown]
  - Depression [Unknown]
  - Suicide attempt [Unknown]
